FAERS Safety Report 14320896 (Version 2)
Quarter: 2018Q1

REPORT INFORMATION
  Report Type: Other
  Country: FR (occurrence: FR)
  Receive Date: 20171223
  Receipt Date: 20180110
  Transmission Date: 20180509
  Serious: Yes (Hospitalization)
  Sender: FDA-Public Use
  Company Number: FR-MACLEODS PHARMACEUTICALS US LTD-MAC2017007117

PATIENT

DRUGS (9)
  1. ABILIFY [Suspect]
     Active Substance: ARIPIPRAZOLE
     Indication: PRODUCT USED FOR UNKNOWN INDICATION
     Dosage: 10 DF, SINGLE,ONE OR TWO TABLETS PER DAY
     Route: 048
     Dates: start: 201512
  2. PRAZEPAM [Suspect]
     Active Substance: PRAZEPAM
     Dosage: UNK, 29 TAB, ONE TIME DOSE
     Route: 048
     Dates: start: 20160716, end: 20160716
  3. ABILIFY [Suspect]
     Active Substance: ARIPIPRAZOLE
     Dosage: 100 MG, DOSE-10 TAB IN SINGLE DOSE
     Route: 048
     Dates: start: 20160716, end: 20160716
  4. SERTRALINE [Suspect]
     Active Substance: SERTRALINE HYDROCHLORIDE
     Indication: PRODUCT USED FOR UNKNOWN INDICATION
     Dosage: 100 MG, QD, (50 MG, BID)
     Route: 048
     Dates: end: 201512
  5. SERTRALINE [Suspect]
     Active Substance: SERTRALINE HYDROCHLORIDE
     Dosage: UNK
     Route: 048
     Dates: start: 20160716, end: 20160716
  6. PRAZEPAM [Suspect]
     Active Substance: PRAZEPAM
     Indication: PRODUCT USED FOR UNKNOWN INDICATION
     Dosage: 29 DF, SINGLE (29 TAB, ONE TIME DOSE)
     Route: 048
     Dates: start: 201512
  7. LEVOCETIRIZINE DIHYDROCHLORIDE. [Suspect]
     Active Substance: LEVOCETIRIZINE DIHYDROCHLORIDE
     Indication: PRODUCT USED FOR UNKNOWN INDICATION
     Dosage: UNK
     Route: 065
     Dates: start: 20160716, end: 20160716
  8. ATARAX [Suspect]
     Active Substance: HYDROXYZINE HYDROCHLORIDE
     Indication: PRODUCT USED FOR UNKNOWN INDICATION
     Dosage: 17 DF, SINGLE, (17 TAB. IN SINGLE DOSE)
     Route: 048
     Dates: start: 201512
  9. ATARAX [Suspect]
     Active Substance: HYDROXYZINE HYDROCHLORIDE
     Dosage: 17 DF, SINGLE,  (17 TAB. IN SINGLE DOSE)
     Route: 048
     Dates: start: 20160716, end: 20160716

REACTIONS (5)
  - Overdose [Recovered/Resolved]
  - Hypotonia [Recovered/Resolved]
  - Hypotension [Recovered/Resolved]
  - Somnolence [Recovered/Resolved]
  - Heart rate decreased [Recovered/Resolved]

NARRATIVE: CASE EVENT DATE: 20160716
